FAERS Safety Report 4833858-2 (Version None)
Quarter: 2005Q4

REPORT INFORMATION
  Report Type: 
  Country: None (occurrence: None)
  Receive Date: 20051118
  Receipt Date: 20051107
  Transmission Date: 20060501
  Serious: Yes (Death)
  Sender: FDA-Public Use
  Company Number: 2005-BP-19717RO

PATIENT
  Age: 52 Year

DRUGS (2)
  1. DIPHENOXYLATE HCL AND ATROPINE SULFATE ORAL SOLUTION USP (DIPHENOXYLAT [Suspect]
  2. HEROIN (DIAMORPHINE) [Suspect]

REACTIONS (1)
  - POLYSUBSTANCE ABUSE [None]
